FAERS Safety Report 12860282 (Version 1)
Quarter: 2016Q4

REPORT INFORMATION
  Report Type: Spontaneous
  Country: FR (occurrence: FR)
  Receive Date: 20161019
  Receipt Date: 20161019
  Transmission Date: 20170207
  Serious: Yes (Other)
  Sender: FDA-Public Use
  Company Number: FR-ELI_LILLY_AND_COMPANY-FR201610004184

PATIENT
  Age: 59 Year
  Sex: Female

DRUGS (3)
  1. ALIMTA [Suspect]
     Active Substance: PEMETREXED DISODIUM
     Dosage: 1 DF, CYCLICAL: EVERY 3 WEEKS (2 CYCLES)
     Route: 065
     Dates: end: 201503
  2. CISPLATINE [Concomitant]
     Active Substance: CISPLATIN
     Indication: LUNG ADENOCARCINOMA
     Dosage: 1 DF, CYCLICAL: EVERY 3 WEEKS (4 CYCLES)
     Route: 065
     Dates: start: 201411
  3. ALIMTA [Suspect]
     Active Substance: PEMETREXED DISODIUM
     Indication: LUNG ADENOCARCINOMA
     Dosage: 1 DF, CYCLICAL: EVERY 3 WEEKS (4 CYCLES)
     Route: 065
     Dates: start: 20141114

REACTIONS (1)
  - Hepatocellular injury [Unknown]

NARRATIVE: CASE EVENT DATE: 201503
